FAERS Safety Report 13526438 (Version 1)
Quarter: 2017Q2

REPORT INFORMATION
  Report Type: Spontaneous
  Country: US (occurrence: US)
  Receive Date: 20170508
  Receipt Date: 20170508
  Transmission Date: 20170830
  Serious: Yes (Life-Threatening, Hospitalization, Disabling)
  Sender: FDA-Public Use
  Company Number: None

PATIENT
  Age: 74 Year
  Sex: Female
  Weight: 51.75 kg

DRUGS (24)
  1. LORATADINE. [Concomitant]
     Active Substance: LORATADINE
  2. LISINOPRIL/HCTZ [Concomitant]
     Active Substance: HYDROCHLOROTHIAZIDE\LISINOPRIL
  3. ZANTAC [Concomitant]
     Active Substance: RANITIDINE HYDROCHLORIDE
  4. HIGH-POTENCY MULTI-VITAMIN AND MINERAL SUPPLEMENT [Concomitant]
  5. COQ10 [Concomitant]
     Active Substance: UBIDECARENONE
  6. OMEGA-3 ACIDS [Concomitant]
     Active Substance: OMEGA-3 FATTY ACIDS
  7. PROBIOTIC [Concomitant]
     Active Substance: PROBIOTICS NOS
  8. DYSPORT [Suspect]
     Active Substance: ABOBOTULINUMTOXINA
     Indication: MUSCLE SPASTICITY
     Route: 030
  9. MAGNESIUM [Concomitant]
     Active Substance: MAGNESIUM
  10. CITALOPRAM [Concomitant]
     Active Substance: CITALOPRAM HYDROBROMIDE
  11. TIZANIDINE. [Concomitant]
     Active Substance: TIZANIDINE
  12. CELECOXIB. [Concomitant]
     Active Substance: CELECOXIB
  13. ACETAMINOPHEN. [Concomitant]
     Active Substance: ACETAMINOPHEN
  14. HYDROCODONE BITARTRATE AND ACETAMINOPHEN [Concomitant]
     Active Substance: ACETAMINOPHEN\HYDROCODONE BITARTRATE
  15. PRAVASTATIN. [Concomitant]
     Active Substance: PRAVASTATIN
  16. ASPIRIN. [Concomitant]
     Active Substance: ASPIRIN
  17. BACLOFEN. [Concomitant]
     Active Substance: BACLOFEN
  18. PANTOPRAZOLE [Concomitant]
     Active Substance: PANTOPRAZOLE
  19. OPTIMAL EFA 820 [Concomitant]
  20. NATTOKINASE [Concomitant]
     Active Substance: NATTOKINASE
  21. COLLAGEN COMPLEX, MARINE\VITAMINS [Concomitant]
     Active Substance: COLLAGEN COMPLEX, MARINE\VITAMINS
  22. VITAMIN D2 [Concomitant]
     Active Substance: ERGOCALCIFEROL
  23. LE BILBNERRY EXTRACT [Concomitant]
  24. VITAMIN C [Concomitant]
     Active Substance: ASCORBIC ACID

REACTIONS (12)
  - Oesophageal spasm [None]
  - Urine flow decreased [None]
  - Visual impairment [None]
  - Vision blurred [None]
  - Lethargy [None]
  - Condition aggravated [None]
  - Speech disorder [None]
  - Fatigue [None]
  - Balance disorder [None]
  - Muscular weakness [None]
  - Incontinence [None]
  - Dry mouth [None]

NARRATIVE: CASE EVENT DATE: 20170330
